FAERS Safety Report 20654319 (Version 4)
Quarter: 2022Q2

REPORT INFORMATION
  Report Type: Spontaneous
  Country: SE (occurrence: SE)
  Receive Date: 20220330
  Receipt Date: 20220512
  Transmission Date: 20220721
  Serious: Yes (Other)
  Sender: FDA-Public Use
  Company Number: SE-ORGANON-O2203SWE001772

PATIENT
  Age: 21 Year
  Sex: Female

DRUGS (2)
  1. NEXPLANON [Suspect]
     Active Substance: ETONOGESTREL
     Dosage: 1 IMPLANT
     Route: 059
     Dates: end: 20190702
  2. NEXPLANON [Suspect]
     Active Substance: ETONOGESTREL
     Dosage: 1 IMPLANT IN LEFT UPPER ARM (REPORTED AS DOMINANT ARM)
     Route: 059
     Dates: start: 20200821, end: 20220201

REACTIONS (8)
  - Ulnar nerve injury [Unknown]
  - Device dislocation [Recovered/Resolved]
  - Sensory loss [Unknown]
  - Vaginal haemorrhage [Unknown]
  - Pain in extremity [Unknown]
  - Device placement issue [Recovered/Resolved]
  - Complication of device removal [Recovered/Resolved]
  - Complication of device insertion [Recovered/Resolved]

NARRATIVE: CASE EVENT DATE: 20200821
